FAERS Safety Report 18543316 (Version 2)
Quarter: 2020Q4

REPORT INFORMATION
  Report Type: Report from Study
  Country: IT (occurrence: IT)
  Receive Date: 20201125
  Receipt Date: 20201129
  Transmission Date: 20210114
  Serious: Yes (Hospitalization)
  Sender: FDA-Public Use
  Company Number: IT-JNJFOC-20200923466

PATIENT
  Age: 93 Year
  Sex: Male

DRUGS (8)
  1. OXYBUTYNIN HYDROCHLORIDE [Suspect]
     Active Substance: OXYBUTYNIN CHLORIDE
     Dosage: 45 MG
  2. RIVAROXABAN [Suspect]
     Active Substance: RIVAROXABAN
     Indication: PRODUCT USED FOR UNKNOWN INDICATION
     Dosage: 45 MG
     Route: 048
     Dates: start: 20200707, end: 20200707
  3. PANTOPRAZOLE [Suspect]
     Active Substance: PANTOPRAZOLE
  4. DUTASTERIDE. [Suspect]
     Active Substance: DUTASTERIDE
  5. LEVOPRAID [SULPIRIDE] [Suspect]
     Active Substance: SULPIRIDE
  6. MITTOVAL [Suspect]
     Active Substance: ALFUZOSIN HYDROCHLORIDE
  7. LASIX [Concomitant]
     Active Substance: FUROSEMIDE
     Dates: start: 20200707, end: 20200707
  8. CALCIUM FOLINATE [Concomitant]
     Active Substance: LEUCOVORIN CALCIUM

REACTIONS (3)
  - Disorganised speech [Not Recovered/Not Resolved]
  - Drug abuse [Not Recovered/Not Resolved]
  - Intentional overdose [Unknown]

NARRATIVE: CASE EVENT DATE: 20200707
